FAERS Safety Report 7147007-1 (Version None)
Quarter: 2010Q4

REPORT INFORMATION
  Report Type: 
  Country: None (occurrence: None)
  Receive Date: 20101209
  Receipt Date: 20100317
  Transmission Date: 20110411
  Serious: Yes (Death)
  Sender: FDA-Public Use
  Company Number: US-ACTELION-A-US2010-34949

PATIENT

DRUGS (2)
  1. BOSENTAN TABLET UNKNOWN MG [Suspect]
     Indication: PULMONARY ARTERIAL HYPERTENSION
     Dosage: UNK
     Route: 048
     Dates: start: 20091231, end: 20100101
  2. REVATIO [Concomitant]

REACTIONS (1)
  - DEATH [None]
